FAERS Safety Report 23673934 (Version 1)
Quarter: 2024Q1

REPORT INFORMATION
  Report Type: Spontaneous
  Country: US (occurrence: None)
  Receive Date: 20240325
  Receipt Date: 20240325
  Transmission Date: 20240410
  Serious: Yes (Other)
  Sender: FDA-Public Use
  Company Number: None

PATIENT
  Age: 15 Year
  Sex: Male
  Weight: 114.75 kg

DRUGS (4)
  1. TOPIRAMATE [Suspect]
     Active Substance: TOPIRAMATE
     Indication: Increased appetite
     Dosage: FREQUENCY : TWICE A DAY;?
     Route: 048
     Dates: start: 20240320, end: 20240323
  2. ARIPIPRAZOLE [Concomitant]
     Active Substance: ARIPIPRAZOLE
     Dates: start: 20240124
  3. CLONIDINE [Concomitant]
     Active Substance: CLONIDINE
     Dates: start: 20240123
  4. OXCARBAZEPINE [Concomitant]
     Dates: start: 20240305

REACTIONS (6)
  - Dizziness [None]
  - Coordination abnormal [None]
  - Dizziness [None]
  - Hyperhidrosis [None]
  - Headache [None]
  - Blood pressure increased [None]

NARRATIVE: CASE EVENT DATE: 20240323
